FAERS Safety Report 20450001 (Version 1)
Quarter: 2022Q1

REPORT INFORMATION
  Report Type: Spontaneous
  Country: US (occurrence: None)
  Receive Date: 20220208
  Receipt Date: 20220208
  Transmission Date: 20220423
  Serious: Yes (Disabling)
  Sender: FDA-Public Use
  Company Number: None

PATIENT
  Age: 32 Year
  Sex: Female
  Weight: 69.75 kg

DRUGS (3)
  1. SUBOXONE [Suspect]
     Active Substance: BUPRENORPHINE HYDROCHLORIDE\NALOXONE HYDROCHLORIDE
     Indication: Product used for unknown indication
     Dates: start: 20150210
  2. CYMBALTA [Concomitant]
     Active Substance: DULOXETINE HYDROCHLORIDE
  3. CLONAZEPAM [Concomitant]
     Active Substance: CLONAZEPAM

REACTIONS (13)
  - Tooth disorder [None]
  - Tooth abscess [None]
  - Tooth infection [None]
  - Gingival disorder [None]
  - Dysphagia [None]
  - Device failure [None]
  - Post procedural complication [None]
  - Tooth disorder [None]
  - Pyrexia [None]
  - Pain in jaw [None]
  - Pregnancy [None]
  - Gingivitis [None]
  - Therapy interrupted [None]
